FAERS Safety Report 5278028-1 (Version None)
Quarter: 2007Q1

REPORT INFORMATION
  Report Type: 
  Country: None (occurrence: None)
  Receive Date: 20070321
  Receipt Date: 20070305
  Transmission Date: 20070707
  Serious: Yes (Disabling, Other)
  Sender: FDA-Public Use
  Company Number: 2007JP000907

PATIENT
  Age: 45 Year
  Sex: Male

DRUGS (3)
  1. PROGRAF [Suspect]
     Indication: STEM CELL TRANSPLANT
  2. STEROID FORMULATION [Concomitant]
  3. METHOTREXATE FORMULATION UNKNOWN [Concomitant]

REACTIONS (2)
  - ENDOPHTHALMITIS [None]
  - SMALL INTESTINAL HAEMORRHAGE [None]
